FAERS Safety Report 12172829 (Version 1)
Quarter: 2016Q1

REPORT INFORMATION
  Report Type: Spontaneous
  Country: JP (occurrence: JP)
  Receive Date: 20160311
  Receipt Date: 20160311
  Transmission Date: 20160526
  Serious: Yes (Other)
  Sender: FDA-Public Use
  Company Number: JP-PFIZER INC-2015337545

PATIENT
  Age: 53 Year
  Sex: Male
  Weight: 56 kg

DRUGS (8)
  1. HALCION [Suspect]
     Active Substance: TRIAZOLAM
     Indication: INSOMNIA
     Dosage: 0.25 MG, 1X/DAY
     Route: 048
  2. FENTOS [Interacting]
     Active Substance: FENTANYL
     Indication: PAIN
     Dosage: 1 MG, DAILY
     Route: 062
     Dates: start: 20150818, end: 20150923
  3. CELECOX [Concomitant]
     Active Substance: CELECOXIB
     Indication: PAIN
     Dosage: 200 MG, DAILY
     Route: 048
     Dates: end: 20151013
  4. RIVOTRIL [Interacting]
     Active Substance: CLONAZEPAM
     Indication: EPILEPSY
     Dosage: 0.5 MG, 1X/DAY
     Route: 048
  5. RIVOTRIL [Interacting]
     Active Substance: CLONAZEPAM
     Dosage: 0.5 MG, 1X/DAY
     Route: 048
     Dates: start: 20151208
  6. TERNELIN [Interacting]
     Active Substance: TIZANIDINE
     Indication: HYPOTONIA
     Dosage: 1 MG, 2X/DAY
     Route: 048
  7. LYRICA [Interacting]
     Active Substance: PREGABALIN
     Indication: NEURALGIA
     Dosage: 150 MG, 2X/DAY
     Route: 048
  8. PL [Interacting]
     Active Substance: ACETAMINOPHEN\CAFFEINE\PROMETHAZINE\SALICYLAMIDE
     Indication: NASOPHARYNGITIS
     Dosage: UNK
     Route: 048

REACTIONS (3)
  - Loss of consciousness [Recovered/Resolved]
  - Road traffic accident [Recovered/Resolved]
  - Drug interaction [Unknown]

NARRATIVE: CASE EVENT DATE: 20150924
